FAERS Safety Report 8998293 (Version 1)
Quarter: 2013Q1

REPORT INFORMATION
  Report Type: Spontaneous
  Country: US (occurrence: US)
  Receive Date: 20130104
  Receipt Date: 20130104
  Transmission Date: 20140127
  Serious: No
  Sender: FDA-Public Use
  Company Number: PHEH2013US000483

PATIENT
  Sex: Female
  Weight: 136.51 kg

DRUGS (5)
  1. TASIGNA [Suspect]
     Dosage: 150 MG, BID
  2. PROZAC [Concomitant]
     Dosage: 10 MG, UNK
  3. AMLODIPINE [Concomitant]
     Dosage: 5 MG, UNK
  4. FUROSEMIDE [Concomitant]
     Dosage: 20 MG, UNK
  5. VICON FORTE [Concomitant]

REACTIONS (1)
  - Rash [Unknown]
